FAERS Safety Report 15580969 (Version 6)
Quarter: 2019Q1

REPORT INFORMATION
  Report Type: Report from Study
  Country: BR (occurrence: BR)
  Receive Date: 20181102
  Receipt Date: 20190306
  Transmission Date: 20190417
  Serious: Yes (Life-Threatening, Hospitalization, Other)
  Sender: FDA-Public Use
  Company Number: PHHY2018BR145324

PATIENT
  Age: 67 Year
  Sex: Female
  Weight: 62 kg

DRUGS (3)
  1. FORASEQ [Suspect]
     Active Substance: BUDESONIDE\FORMOTEROL FUMARATE
     Indication: ASTHMA
     Route: 065
  2. XOLAIR [Suspect]
     Active Substance: OMALIZUMAB
     Dosage: UNK
     Route: 058
     Dates: start: 20190227
  3. XOLAIR [Suspect]
     Active Substance: OMALIZUMAB
     Indication: ASTHMA
     Dosage: 300 MG, QMO
     Route: 058
     Dates: start: 20181121

REACTIONS (27)
  - Weight increased [Not Recovered/Not Resolved]
  - Fatigue [Not Recovered/Not Resolved]
  - Nausea [Recovered/Resolved]
  - Osteoporosis [Not Recovered/Not Resolved]
  - Visual impairment [Unknown]
  - Bone disorder [Not Recovered/Not Resolved]
  - Abdominal discomfort [Not Recovered/Not Resolved]
  - Feeling cold [Recovered/Resolved]
  - Application site pain [Recovered/Resolved]
  - Drug ineffective [Not Recovered/Not Resolved]
  - Cardio-respiratory arrest [Recovering/Resolving]
  - Pulmonary pain [Recovered/Resolved]
  - Blood immunoglobulin E increased [Not Recovered/Not Resolved]
  - Keratoconus [Unknown]
  - Cataract [Recovering/Resolving]
  - Bone pain [Not Recovered/Not Resolved]
  - Headache [Recovered/Resolved]
  - Rhinorrhoea [Recovered/Resolved]
  - Pyrexia [Recovered/Resolved]
  - Peripheral swelling [Not Recovered/Not Resolved]
  - Malaise [Unknown]
  - Dyspnoea [Recovering/Resolving]
  - Pain [Recovered/Resolved]
  - Body height decreased [Not Recovered/Not Resolved]
  - Headache [Recovered/Resolved]
  - Accident [Unknown]
  - Nasopharyngitis [Unknown]

NARRATIVE: CASE EVENT DATE: 201807
